FAERS Safety Report 15117239 (Version 1)
Quarter: 2018Q3

REPORT INFORMATION
  Report Type: Spontaneous
  Country: US (occurrence: US)
  Receive Date: 20180706
  Receipt Date: 20180706
  Transmission Date: 20181010
  Serious: Yes (Other)
  Sender: FDA-Public Use
  Company Number: US-DSJP-DSU-2017-147485

PATIENT

DRUGS (1)
  1. BENICAR [Suspect]
     Active Substance: OLMESARTAN MEDOXOMIL
     Indication: PRODUCT USED FOR UNKNOWN INDICATION
     Dosage: 20 MG, QD
     Dates: start: 20100101, end: 20111231

REACTIONS (4)
  - Diverticulitis [Not Recovered/Not Resolved]
  - Weight decreased [Unknown]
  - Diverticulum intestinal [Unknown]
  - Hypotension [Unknown]

NARRATIVE: CASE EVENT DATE: 20100629
